FAERS Safety Report 13154050 (Version 1)
Quarter: 2017Q1

REPORT INFORMATION
  Report Type: Spontaneous
  Country: US (occurrence: US)
  Receive Date: 20170126
  Receipt Date: 20170126
  Transmission Date: 20170428
  Serious: No
  Sender: FDA-Public Use
  Company Number: US-AMGEN-USASP2016103434

PATIENT
  Age: 64 Year
  Sex: Female

DRUGS (2)
  1. KYPROLIS [Suspect]
     Active Substance: CARFILZOMIB
     Dosage: 27 MG, UNK
     Route: 065
  2. KYPROLIS [Suspect]
     Active Substance: CARFILZOMIB
     Indication: PRODUCT USED FOR UNKNOWN INDICATION
     Dosage: 20 MG, UNK
     Route: 065

REACTIONS (1)
  - Chest pain [Unknown]
